FAERS Safety Report 26209751 (Version 1)
Quarter: 2025Q4

REPORT INFORMATION
  Report Type: Spontaneous
  Country: EU (occurrence: EU)
  Receive Date: 20251229
  Receipt Date: 20251229
  Transmission Date: 20260117
  Serious: Yes (Other)
  Sender: PFIZER
  Company Number: EU-ROCHE-10000455195

PATIENT
  Age: 67 Year
  Sex: Male

DRUGS (2)
  1. BEVACIZUMAB [Suspect]
     Active Substance: BEVACIZUMAB
     Dosage: 15 MG/KG
     Route: 042
     Dates: start: 20250114
  2. ATEZOLIZUMAB [Suspect]
     Active Substance: ATEZOLIZUMAB
     Dosage: 1200 MG
     Route: 042
     Dates: start: 20250114

REACTIONS (4)
  - Hypothyroidism [Unknown]
  - Therapy partial responder [Unknown]
  - Muscle spasms [Unknown]
  - Blood creatine phosphokinase MB increased [Unknown]
